FAERS Safety Report 7246793 (Version 4)
Quarter: 2015Q1

REPORT INFORMATION
  Report Type: Spontaneous
  Country: CA (occurrence: CA)
  Receive Date: 20100115
  Receipt Date: 20150206
  Transmission Date: 20150721
  Serious: Yes (Death, Hospitalization)
  Sender: FDA-Public Use
  Company Number: CA-ROCHE-677966

PATIENT
  Age: 8 Month
  Sex: Male

DRUGS (17)
  1. ARANESP [Suspect]
     Active Substance: DARBEPOETIN ALFA
     Dosage: 10 UG, 1 PER 5 DAYS, DOSE TITRATED TO A MAXIMUM OF 50 UG
     Route: 058
     Dates: start: 20090406, end: 20090504
  2. ENALAPRIL MALEATE. [Concomitant]
     Active Substance: ENALAPRIL MALEATE
     Route: 048
  3. ETACRYNIC ACID [Concomitant]
     Route: 042
  4. ETHACRYNIC ACID [Concomitant]
     Active Substance: ETHACRYNIC ACID
     Route: 065
  5. TACROLIMUS. [Concomitant]
     Active Substance: TACROLIMUS
     Route: 048
  6. FUROSEMIDE. [Concomitant]
     Active Substance: FUROSEMIDE
     Route: 065
  7. CLOBAZAM [Concomitant]
     Active Substance: CLOBAZAM
     Route: 065
  8. OMEPRAZOLE. [Concomitant]
     Active Substance: OMEPRAZOLE
     Route: 065
  9. METOLAZONE. [Concomitant]
     Active Substance: METOLAZONE
     Route: 048
  10. LEVETIRACETAM. [Concomitant]
     Active Substance: LEVETIRACETAM
     Route: 065
  11. CELLCEPT [Suspect]
     Active Substance: MYCOPHENOLATE MOFETIL\MYCOPHENOLATE MOFETIL HYDROCHLORIDE
     Indication: PROPHYLAXIS AGAINST TRANSPLANT REJECTION
     Route: 048
  12. ARANESP [Suspect]
     Active Substance: DARBEPOETIN ALFA
     Indication: CHRONIC KIDNEY DISEASE
     Dosage: FOR 29 DAYS
     Route: 058
  13. SODIUM CHLORIDE. [Concomitant]
     Active Substance: SODIUM CHLORIDE
     Route: 065
  14. DOMPERIDONE [Concomitant]
     Active Substance: DOMPERIDONE
     Route: 048
  15. HYDROCHLOROTHIAZIDE/SPIRONOLACTONE [Concomitant]
     Active Substance: HYDROCHLOROTHIAZIDE\SPIRONOLACTONE
     Route: 065
  16. CALCITRIOL. [Suspect]
     Active Substance: CALCITRIOL
     Indication: PRODUCT USED FOR UNKNOWN INDICATION
     Route: 065
  17. TOPIRAMATE. [Concomitant]
     Active Substance: TOPIRAMATE
     Route: 065

REACTIONS (19)
  - Device related infection [Fatal]
  - Respiratory distress [Fatal]
  - Seizure [Fatal]
  - Haemoglobin decreased [Fatal]
  - Aspiration [Fatal]
  - Developmental delay [Fatal]
  - Wheezing [Fatal]
  - Staphylococcal infection [Fatal]
  - Enterococcal infection [Fatal]
  - Transplant rejection [Fatal]
  - Haematocrit decreased [Fatal]
  - Pyrexia [Fatal]
  - No therapeutic response [Fatal]
  - Oxygen supplementation [Fatal]
  - Aplasia pure red cell [Fatal]
  - Staphylococcus test positive [Fatal]
  - Continuous positive airway pressure [Fatal]
  - Thrombosis [Fatal]
  - Packed red blood cell transfusion [Fatal]

NARRATIVE: CASE EVENT DATE: 200904
